FAERS Safety Report 6589966-1 (Version None)
Quarter: 2010Q1

REPORT INFORMATION
  Report Type: 
  Country: None (occurrence: None)
  Receive Date: 20100203
  Receipt Date: 20090526
  Transmission Date: 20100710
  Serious: Yes (Life-Threatening)
  Sender: FDA-Public Use
  Company Number: PROG00209002927

PATIENT
  Age: 56 Year
  Sex: Female
  Weight: 55.454 kg

DRUGS (1)
  1. PROMETRIUM [Suspect]
     Indication: HORMONE REPLACEMENT THERAPY
     Dosage: 100 MILLIGRAM(S) QD ORAL DAILY DOSE: 100 MILLIGRAM(S)
     Route: 048
     Dates: start: 20050101

REACTIONS (1)
  - CHOKING [None]
